FAERS Safety Report 9536660 (Version 1)
Quarter: 2013Q3

REPORT INFORMATION
  Report Type: Report from Study
  Country: US (occurrence: US)
  Receive Date: 20130919
  Receipt Date: 20130919
  Transmission Date: 20140515
  Serious: Yes (Hospitalization)
  Sender: FDA-Public Use
  Company Number: US-ROCHE-1275746

PATIENT
  Sex: Female
  Weight: 85.44 kg

DRUGS (16)
  1. HERCEPTIN [Suspect]
     Indication: BREAST CANCER
     Route: 065
  2. KEFLEX [Concomitant]
  3. SIMVASTATIN [Concomitant]
  4. LANTUS [Concomitant]
  5. SYNTHROID [Concomitant]
  6. ONGLYZA [Concomitant]
  7. LOSARTAN [Concomitant]
  8. GLIMEPIRIDE [Concomitant]
  9. GABAPENTIN [Concomitant]
  10. HYDROCODONE HCL [Concomitant]
  11. EXEMESTANE [Concomitant]
  12. ALBUTEROL INHALER [Concomitant]
  13. ZOMETA [Concomitant]
  14. NALOXONE [Concomitant]
  15. TAXOL [Concomitant]
  16. AFINITOR [Concomitant]

REACTIONS (5)
  - Malignant pleural effusion [Unknown]
  - Cellulitis [Unknown]
  - Erythema [Recovering/Resolving]
  - Lymphoedema [Unknown]
  - Neuropathy peripheral [Unknown]
